FAERS Safety Report 9733472 (Version 2)
Quarter: 2014Q4

REPORT INFORMATION
  Report Type: Report from Study
  Country: BR (occurrence: BR)
  Receive Date: 20131205
  Receipt Date: 20141219
  Transmission Date: 20150529
  Serious: Yes (Hospitalization, Other)
  Sender: FDA-Public Use
  Company Number: BR-BIOGENIDEC-2013BI116434

PATIENT
  Age: 33 Year
  Sex: Female

DRUGS (10)
  1. AVONEX [Suspect]
     Active Substance: INTERFERON BETA-1A
     Indication: MULTIPLE SCLEROSIS
     Route: 030
     Dates: start: 2007, end: 201301
  2. AVONEX [Suspect]
     Active Substance: INTERFERON BETA-1A
     Indication: MULTIPLE SCLEROSIS
     Route: 030
     Dates: start: 201301
  3. PHENERGAN [Concomitant]
     Active Substance: PROMETHAZINE HYDROCHLORIDE
  4. DONAREN [Concomitant]
     Active Substance: TRAZODONE HYDROCHLORIDE
  5. BUPROPION [Concomitant]
     Active Substance: BUPROPION
     Indication: ANXIETY
  6. BUPROPION [Concomitant]
     Active Substance: BUPROPION
     Indication: EX-TOBACCO USER
  7. CLONAZEPAM. [Concomitant]
     Active Substance: CLONAZEPAM
  8. RIVOTRIL [Concomitant]
     Active Substance: CLONAZEPAM
  9. LEXAPRO [Concomitant]
     Active Substance: ESCITALOPRAM OXALATE
  10. TIORFAN [Concomitant]
     Active Substance: RACECADOTRIL
     Indication: GASTROINTESTINAL DISORDER

REACTIONS (17)
  - Cholelithiasis [Unknown]
  - Hepatic steatosis [Unknown]
  - Pain [Unknown]
  - Astigmatism [Unknown]
  - Progressive multiple sclerosis [Unknown]
  - Gingival disorder [Not Recovered/Not Resolved]
  - Strabismus [Unknown]
  - Endometriosis [Unknown]
  - Weight increased [Not Recovered/Not Resolved]
  - Arthropathy [Unknown]
  - Visual impairment [Unknown]
  - Malaise [Recovered/Resolved]
  - Appendicitis [Recovered/Resolved]
  - Muscular weakness [Unknown]
  - Balance disorder [Unknown]
  - Arthritis [Unknown]
  - Pyrexia [Unknown]

NARRATIVE: CASE EVENT DATE: 2007
